FAERS Safety Report 15713273 (Version 1)
Quarter: 2018Q4

REPORT INFORMATION
  Report Type: Spontaneous
  Country: US (occurrence: US)
  Receive Date: 20181212
  Receipt Date: 20181212
  Transmission Date: 20190205
  Serious: No
  Sender: FDA-Public Use
  Company Number: US-009507513-1811USA011082

PATIENT
  Age: 52 Year
  Sex: Male

DRUGS (1)
  1. PROPECIA [Suspect]
     Active Substance: FINASTERIDE
     Dosage: 1 MG
     Route: 048
     Dates: start: 201809

REACTIONS (4)
  - Libido decreased [Unknown]
  - Drug ineffective [Unknown]
  - Hair growth abnormal [Unknown]
  - Depression [Unknown]

NARRATIVE: CASE EVENT DATE: 2018
